FAERS Safety Report 7285824-8 (Version None)
Quarter: 2011Q1

REPORT INFORMATION
  Report Type: 
  Country: None (occurrence: None)
  Receive Date: 20110210
  Receipt Date: 20110204
  Transmission Date: 20110831
  Serious: Yes (Other)
  Sender: FDA-Public Use
  Company Number: JP-GENZYME-FLUD-1000702

PATIENT
  Age: 6 Year
  Sex: Male

DRUGS (8)
  1. FLUDARA [Suspect]
     Dosage: 120 MG/M2, UNK
     Route: 065
     Dates: start: 20050101, end: 20050101
  2. THYMOGLOBULIN [Suspect]
     Indication: STEM CELL TRANSPLANT
     Dosage: 20 MG/KG, UNK
     Route: 065
     Dates: start: 20050101, end: 20050101
  3. CYCLOPHOSPHAMIDE [Suspect]
     Indication: STEM CELL TRANSPLANT
     Dosage: 50 MG/KG, UNK
     Route: 065
  4. THYMOGLOBULIN [Suspect]
     Dosage: 20 MG/KG, UNK
     Route: 065
  5. CYCLOSPORINE [Concomitant]
     Indication: PROPHYLAXIS AGAINST GRAFT VERSUS HOST DISEASE
     Dosage: 3 MG/KG, UNK
     Route: 042
  6. FLUDARA [Suspect]
     Indication: STEM CELL TRANSPLANT
     Dosage: 100 MG/M2, UNK
     Route: 065
     Dates: start: 20050101, end: 20050101
  7. MELPHALAN [Suspect]
     Indication: STEM CELL TRANSPLANT
     Dosage: 50 MG/M2, UNK
     Route: 065
     Dates: start: 20050101, end: 20050101
  8. ETOPOSIDE [Suspect]
     Indication: STEM CELL TRANSPLANT
     Dosage: 900 MG/M2, UNK
     Route: 065

REACTIONS (1)
  - ACUTE GRAFT VERSUS HOST DISEASE [None]
